FAERS Safety Report 20387149 (Version 1)
Quarter: 2022Q1

REPORT INFORMATION
  Report Type: Spontaneous
  Country: CN (occurrence: None)
  Receive Date: 20220127
  Receipt Date: 20220127
  Transmission Date: 20220424
  Serious: Yes (Hospitalization, Other)
  Sender: FDA-Public Use
  Company Number: 2022A038683

PATIENT
  Age: 47 Year
  Sex: Male

DRUGS (7)
  1. OSIMERTINIB MESYLATE [Suspect]
     Active Substance: OSIMERTINIB MESYLATE
     Indication: Lung adenocarcinoma
     Route: 048
     Dates: start: 20191114
  2. ICOTINIB [Concomitant]
     Active Substance: ICOTINIB
     Route: 065
     Dates: start: 20180628
  3. ICOTINIB [Concomitant]
     Active Substance: ICOTINIB
     Route: 065
     Dates: start: 20180904, end: 20190925
  4. ICOTINIB [Concomitant]
     Active Substance: ICOTINIB
     Route: 065
     Dates: start: 20190926
  5. PEMETREXED [Concomitant]
     Active Substance: PEMETREXED
     Dosage: 800 MG D1 FOR 12 CYCLES
     Route: 065
     Dates: start: 20180904, end: 20190925
  6. OXYCODONE HYDROCHLORIDE [Concomitant]
     Active Substance: OXYCODONE HYDROCHLORIDE
     Indication: Analgesic therapy
     Dosage: 10 MG Q12H DAILY
     Route: 065
  7. IBANDRONATE SODIUM [Concomitant]
     Active Substance: IBANDRONATE SODIUM
     Indication: Bone disorder
     Dosage: 4.0MG UNKNOWN
     Route: 041
     Dates: start: 202001

REACTIONS (2)
  - Neurotoxicity [Recovered/Resolved]
  - Generalised tonic-clonic seizure [Recovered/Resolved]
